FAERS Safety Report 7568434-4 (Version None)
Quarter: 2011Q2

REPORT INFORMATION
  Report Type: 
  Country: None (occurrence: None)
  Receive Date: 20110617
  Receipt Date: 20110607
  Transmission Date: 20111010
  Serious: Yes (Other)
  Sender: FDA-Public Use
  Company Number: FK201101163

PATIENT
  Age: 66 Year
  Sex: Male

DRUGS (3)
  1. ETOPOSIDE [Suspect]
     Indication: AESTHESIONEUROBLASTOMA
     Dosage: 120 MG/M2, ON DAY 1,3 AND 23-25
  2. CISPLATIN [Suspect]
     Indication: AESTHESIONEUROBLASTOMA
     Dosage: 60 MG/M2, ON DAY 1 AND 23
  3. CARBOPLATIN [Suspect]
     Indication: AESTHESIONEUROBLASTOMA
     Dosage: AUC 6

REACTIONS (7)
  - PNEUMONIA [None]
  - MUCOSAL INFLAMMATION [None]
  - INAPPROPRIATE ANTIDIURETIC HORMONE SECRETION [None]
  - HYPONATRAEMIA [None]
  - SOFT TISSUE INFECTION [None]
  - NEUTROPENIC SEPSIS [None]
  - DERMATITIS [None]
